FAERS Safety Report 11490646 (Version 1)
Quarter: 2015Q3

REPORT INFORMATION
  Report Type: Spontaneous
  Country: US (occurrence: US)
  Receive Date: 20150910
  Receipt Date: 20150910
  Transmission Date: 20151125
  Serious: Yes (Hospitalization, Other)
  Sender: FDA-Public Use
  Company Number: US-US WORLDMEDS, LLC-USW201508-000233

PATIENT
  Age: 72 Year
  Sex: Female

DRUGS (5)
  1. REQUIP [Concomitant]
     Active Substance: ROPINIROLE HYDROCHLORIDE
  2. APOKYN [Suspect]
     Active Substance: APOMORPHINE HYDROCHLORIDE
     Indication: PARKINSON^S DISEASE
     Dates: start: 2003
  3. APOKYN [Suspect]
     Active Substance: APOMORPHINE HYDROCHLORIDE
  4. CARBIDOPA/LEVODOPA/ENTACAPONE [Concomitant]
     Active Substance: CARBIDOPA\ENTACAPONE\LEVODOPA
  5. LIPITOR [Concomitant]
     Active Substance: ATORVASTATIN CALCIUM

REACTIONS (2)
  - Cerebrovascular accident [Recovering/Resolving]
  - Delirium [Recovering/Resolving]

NARRATIVE: CASE EVENT DATE: 20150821
